FAERS Safety Report 4331822-3 (Version None)
Quarter: 2004Q2

REPORT INFORMATION
  Report Type: 
  Country: None (occurrence: None)
  Receive Date: 20040405
  Receipt Date: 20031023
  Transmission Date: 20050107
  Serious: No
  Sender: FDA-Public Use
  Company Number: US-GLAXOSMITHKLINE-A0431430A

PATIENT
  Age: 74 Year
  Sex: Male

DRUGS (3)
  1. FLOVENT [Suspect]
     Dosage: 3PUFF PER DAY
     Route: 055
  2. SEREVENT [Suspect]
     Dosage: 2PUFF TWICE PER DAY
     Route: 055
  3. COMBIVENT [Concomitant]

REACTIONS (1)
  - DYSPNOEA EXACERBATED [None]
